FAERS Safety Report 13094525 (Version 1)
Quarter: 2017Q1

REPORT INFORMATION
  Report Type: Spontaneous
  Country: US (occurrence: US)
  Receive Date: 20170106
  Receipt Date: 20170106
  Transmission Date: 20170428
  Serious: No
  Sender: FDA-Public Use
  Company Number: US-MORTON GROVE PHARMACEUTICALS, INC.-1061649

PATIENT
  Age: 72 Year
  Sex: Female

DRUGS (3)
  1. RALOXIFENE. [Concomitant]
     Active Substance: RALOXIFENE
  2. LEVOTHYROXINE. [Concomitant]
     Active Substance: LEVOTHYROXINE
  3. FLUTICASONE PROPIONATE NASAL SPRAY USP, 50 MCG/SPRAY [Suspect]
     Active Substance: FLUTICASONE PROPIONATE
     Indication: SINUSITIS
     Route: 045
     Dates: start: 20160908, end: 20160908

REACTIONS (4)
  - Instillation site erythema [None]
  - Instillation site irritation [None]
  - Erythema [None]
  - Instillation site pain [Recovered/Resolved]

NARRATIVE: CASE EVENT DATE: 20160908
